FAERS Safety Report 25290367 (Version 1)
Quarter: 2025Q2

REPORT INFORMATION
  Report Type: Spontaneous
  Country: HU (occurrence: HU)
  Receive Date: 20250510
  Receipt Date: 20250510
  Transmission Date: 20250716
  Serious: Yes (Other)
  Sender: ROCHE
  Company Number: HU-ROCHE-10000272600

PATIENT
  Age: 18 Year
  Sex: Male

DRUGS (9)
  1. CELLCEPT [Suspect]
     Active Substance: MYCOPHENOLATE MOFETIL
     Indication: Lupus nephritis
     Route: 065
  2. PREDNISONE [Concomitant]
     Active Substance: PREDNISONE
  3. PLAQUENIL [Concomitant]
     Active Substance: HYDROXYCHLOROQUINE SULFATE
  4. LUPKYNIS [Concomitant]
     Active Substance: VOCLOSPORIN
  5. SODIUM BICARBONATE [Concomitant]
     Active Substance: SODIUM BICARBONATE
  6. VALSARTAN [Concomitant]
     Active Substance: VALSARTAN
  7. B12 [Concomitant]
  8. IRON [Concomitant]
     Active Substance: IRON
  9. METOPROLOL [Concomitant]
     Active Substance: METOPROLOL

REACTIONS (4)
  - Dizziness [Unknown]
  - Photopsia [Unknown]
  - Nasal discomfort [Unknown]
  - Insomnia [Unknown]
